FAERS Safety Report 5196981-1 (Version None)
Quarter: 2006Q4

REPORT INFORMATION
  Report Type: 
  Country: None (occurrence: None)
  Receive Date: 20061227
  Receipt Date: 20061218
  Transmission Date: 20070319
  Serious: Yes (Other)
  Sender: FDA-Public Use
  Company Number: 2006154894

PATIENT
  Age: 90 Year
  Sex: Female

DRUGS (2)
  1. LYRICA [Suspect]
     Indication: DIABETIC NEUROPATHY
     Dosage: 150 MG (75 MG,2 IN 1 D)
     Dates: start: 20061212, end: 20061201
  2. LYRICA [Suspect]
     Indication: SCIATICA
     Dosage: 150 MG (75 MG,2 IN 1 D)
     Dates: start: 20061212, end: 20061201

REACTIONS (3)
  - DYSSTASIA [None]
  - GAIT DISTURBANCE [None]
  - IMMOBILE [None]
